FAERS Safety Report 9546947 (Version 1)
Quarter: 2013Q2

REPORT INFORMATION
  Report Type: Spontaneous
  Country: US (occurrence: None)
  Receive Date: 20130606
  Receipt Date: 20130606
  Transmission Date: 20140414
  Serious: No
  Sender: FDA-Public Use
  Company Number: 163-POMAL-13044834

PATIENT
  Age: 82 Year
  Sex: Female

DRUGS (7)
  1. POMALYST [Suspect]
     Indication: PLASMA CELL MYELOMA
     Route: 048
     Dates: start: 20130323
  2. FLECAINIDE [Concomitant]
  3. ASPIRIN [Concomitant]
  4. VITAMIN D (ERGOCALCIFEROL) [Concomitant]
  5. CYCLOPHOSPHAMIDE [Concomitant]
  6. DEXAMETHASONE [Concomitant]
  7. BENADRYL [Concomitant]

REACTIONS (4)
  - Malaise [None]
  - Cystitis [None]
  - Back pain [None]
  - Pruritus [None]
